FAERS Safety Report 14223396 (Version 2)
Quarter: 2017Q4

REPORT INFORMATION
  Report Type: Spontaneous
  Country: GR (occurrence: GR)
  Receive Date: 20171125
  Receipt Date: 20171211
  Transmission Date: 20180321
  Serious: Yes (Other)
  Sender: FDA-Public Use
  Company Number: GR-ROCHE-2031078

PATIENT
  Age: 45 Year
  Sex: Female

DRUGS (1)
  1. XENICAL [Suspect]
     Active Substance: ORLISTAT
     Indication: WEIGHT DECREASED
     Route: 048

REACTIONS (3)
  - White blood cell count decreased [Recovered/Resolved]
  - Rash [Recovered/Resolved]
  - Nephrolithiasis [Not Recovered/Not Resolved]
